FAERS Safety Report 7165699-8 (Version None)
Quarter: 2010Q4

REPORT INFORMATION
  Report Type: 
  Country: None (occurrence: None)
  Receive Date: 20101215
  Receipt Date: 20100104
  Transmission Date: 20110411
  Serious: Yes (Other)
  Sender: FDA-Public Use
  Company Number: US-AMGEN-KDL383513

PATIENT

DRUGS (5)
  1. ENBREL [Suspect]
     Indication: PSORIASIS
     Dosage: 50 MG, QWK
     Route: 058
  2. ENBREL [Suspect]
     Indication: PSORIATIC ARTHROPATHY
  3. INSULIN GLARGINE [Concomitant]
  4. INSULIN ASPART [Concomitant]
     Dosage: 100 ML, UNK
  5. UNSPECIFIED MEDICATION [Concomitant]

REACTIONS (1)
  - THROMBOSIS [None]
